FAERS Safety Report 17879440 (Version 2)
Quarter: 2022Q1

REPORT INFORMATION
  Report Type: Spontaneous
  Country: US (occurrence: US)
  Receive Date: 20200610
  Receipt Date: 20220224
  Transmission Date: 20220423
  Serious: Yes (Death, Other)
  Sender: FDA-Public Use
  Company Number: US-SAARTEMIS-SAC202006040361

PATIENT
  Age: 49 Year
  Sex: Male

DRUGS (1)
  1. ZANTAC [Suspect]
     Active Substance: RANITIDINE HYDROCHLORIDE
     Dosage: 25 MG, QD
     Dates: start: 200101, end: 202001

REACTIONS (2)
  - Prostatic disorder [Fatal]
  - Prostate cancer stage II [Unknown]

NARRATIVE: CASE EVENT DATE: 20030101
